FAERS Safety Report 9290270 (Version 2)
Quarter: 2013Q2

REPORT INFORMATION
  Report Type: Report from Study
  Country: JP (occurrence: JP)
  Receive Date: 20130515
  Receipt Date: 20130607
  Transmission Date: 20140414
  Serious: Yes (Hospitalization)
  Sender: FDA-Public Use
  Company Number: JP-AMGEN-JPNCT2013034049

PATIENT
  Age: 78 Year
  Sex: Male

DRUGS (16)
  1. DARBEPOETIN ALFA [Suspect]
     Indication: NEPHROGENIC ANAEMIA
     Dosage: 60 MUG, Q4WK
     Route: 058
     Dates: start: 20110318, end: 20110415
  2. DARBEPOETIN ALFA [Suspect]
     Dosage: 60 MUG, QD
     Route: 058
     Dates: start: 20110509, end: 20110509
  3. DARBEPOETIN ALFA [Suspect]
     Dosage: 60 MUG, QD
     Route: 058
     Dates: start: 20110613, end: 20110613
  4. DARBEPOETIN ALFA [Suspect]
     Dosage: 60 MUG, QD
     Route: 058
     Dates: start: 20110725, end: 20110725
  5. DARBEPOETIN ALFA [Suspect]
     Dosage: 60 MUG, QD
     Route: 058
     Dates: start: 20110815, end: 20110815
  6. DARBEPOETIN ALFA [Suspect]
     Dosage: 120 MUG, QD
     Route: 058
     Dates: start: 20110912, end: 20110912
  7. DARBEPOETIN ALFA [Suspect]
     Dosage: 120 MUG, Q4WK
     Route: 058
     Dates: start: 20111024, end: 20120213
  8. DARBEPOETIN ALFA [Suspect]
     Dosage: 120 MUG, QD
     Route: 058
     Dates: start: 20120229, end: 20120229
  9. DARBEPOETIN ALFA [Suspect]
     Dosage: 120 MUG, QD
     Route: 058
     Dates: start: 20120319, end: 20120319
  10. DARBEPOETIN ALFA [Suspect]
     Dosage: 120 MUG, QD
     Route: 058
     Dates: start: 20120423, end: 20120423
  11. DARBEPOETIN ALFA [Suspect]
     Dosage: 120 MUG, QD
     Route: 058
     Dates: start: 20120528, end: 20120528
  12. KREMEZIN [Suspect]
     Indication: NEPHROSCLEROSIS
     Dosage: 2000 MG, TID
     Route: 048
     Dates: start: 20081107
  13. ZYLORIC [Suspect]
     Dosage: 100 MG, QD
     Route: 048
     Dates: start: 20081205
  14. CARDENALIN [Suspect]
     Dosage: 2 MG, QD
     Route: 048
     Dates: start: 20090109
  15. LASIX [Suspect]
     Indication: NEPHROSCLEROSIS
     Dosage: 10 MG, QD
     Route: 048
     Dates: start: 20081205
  16. NORVASC [Suspect]
     Dosage: 5 MG, BID
     Route: 048
     Dates: start: 20090911

REACTIONS (1)
  - Allergic granulomatous angiitis [Recovering/Resolving]
